FAERS Safety Report 14890000 (Version 1)
Quarter: 2018Q2

REPORT INFORMATION
  Report Type: Spontaneous
  Country: US (occurrence: US)
  Receive Date: 20180514
  Receipt Date: 20180514
  Transmission Date: 20180711
  Serious: No
  Sender: FDA-Public Use
  Company Number: US-JNJFOC-20180501997

PATIENT
  Age: 63 Year
  Sex: Female
  Weight: 55.34 kg

DRUGS (2)
  1. ROGAINE [Concomitant]
     Active Substance: MINOXIDIL
     Indication: ALOPECIA
     Dosage: ROGAINE FOR WOMEN FOAM FOR ABOUT 4-5 YEARS: HALF CAPFUL ONCE A DAY
     Route: 065
  2. NIZORAL A-D [Suspect]
     Active Substance: KETOCONAZOLE
     Indication: ALOPECIA
     Route: 065

REACTIONS (1)
  - Drug administration error [Unknown]
